FAERS Safety Report 4896288-3 (Version None)
Quarter: 2006Q1

REPORT INFORMATION
  Report Type: 
  Country: None (occurrence: None)
  Receive Date: 20060131
  Receipt Date: 20060125
  Transmission Date: 20060701
  Serious: Yes (Death)
  Sender: FDA-Public Use
  Company Number: JP-JNJFOC-20060104844

PATIENT
  Sex: Male

DRUGS (1)
  1. LEVOXACIN [Suspect]
     Route: 065

REACTIONS (1)
  - DEATH [None]
